FAERS Safety Report 12133967 (Version 2)
Quarter: 2016Q1

REPORT INFORMATION
  Report Type: Spontaneous
  Country: RU (occurrence: RU)
  Receive Date: 20160301
  Receipt Date: 20160322
  Transmission Date: 20160526
  Serious: Yes (Death)
  Sender: FDA-Public Use
  Company Number: RU-ACTELION-A-CH2016-131642

PATIENT
  Age: 31 Year
  Sex: Male
  Weight: 78 kg

DRUGS (14)
  1. TRIAMPUR [Concomitant]
     Active Substance: HYDROCHLOROTHIAZIDE\TRIAMTERENE
     Indication: CARDIAC FAILURE CHRONIC
     Dosage: 50 MG, OD
     Route: 048
     Dates: start: 201101, end: 20151119
  2. TRACLEER [Suspect]
     Active Substance: BOSENTAN
     Dosage: 62.5 MG, BID
     Route: 048
     Dates: start: 2011
  3. BISOPROLOL [Concomitant]
     Active Substance: BISOPROLOL
     Indication: CARDIAC FAILURE CHRONIC
     Dosage: 1.25 MG, OD
     Route: 048
     Dates: start: 201106, end: 20151119
  4. CORAXAN [Concomitant]
     Active Substance: IVABRADINE HYDROCHLORIDE
     Indication: SINUS TACHYCARDIA
  5. SPIRONOLACTON [Concomitant]
     Active Substance: SPIRONOLACTONE
     Indication: CARDIAC FAILURE CHRONIC
     Dosage: 25 MG, OD
     Route: 048
     Dates: start: 201101, end: 20151119
  6. VARFARINA [Concomitant]
     Dosage: 3.75 MG, OD
     Route: 048
     Dates: start: 201106, end: 20151119
  7. REVATIO [Concomitant]
     Active Substance: SILDENAFIL CITRATE
     Indication: PULMONARY ARTERIAL HYPERTENSION
     Dosage: 20 MG, TID
     Route: 048
     Dates: start: 201112, end: 20151119
  8. PERINDOPRIL [Concomitant]
     Active Substance: PERINDOPRIL
     Indication: CARDIAC FAILURE CHRONIC
     Dosage: UNK UNK, OD
     Route: 048
     Dates: start: 201106, end: 20151119
  9. ACETAZOLAMIDE DC [Concomitant]
     Indication: CARDIAC FAILURE CHRONIC
     Dosage: 250 MG, OD
     Route: 048
     Dates: start: 201509, end: 20151119
  10. CORAXAN [Concomitant]
     Active Substance: IVABRADINE HYDROCHLORIDE
     Indication: CARDIAC FAILURE CHRONIC
     Dosage: 5 MG, OD
     Route: 048
     Dates: start: 201106, end: 20151119
  11. FOLIC ACID. [Concomitant]
     Active Substance: FOLIC ACID
     Indication: ANAEMIA
     Dosage: 0.1 MG, TID
     Route: 048
     Dates: start: 201509, end: 20151119
  12. TRACLEER [Suspect]
     Active Substance: BOSENTAN
     Indication: PULMONARY ARTERIAL HYPERTENSION
     Dosage: 125 MG, BID
     Route: 048
     Dates: start: 201202, end: 20151119
  13. DIGOXIN. [Concomitant]
     Active Substance: DIGOXIN
     Indication: CARDIAC FAILURE CHRONIC
     Dosage: 0.125 UNK, OD
     Route: 048
     Dates: start: 201411, end: 20151119
  14. TORASEMID [Concomitant]
     Active Substance: TORSEMIDE
     Indication: CARDIAC FAILURE CHRONIC
     Dosage: 20 MG, BID
     Route: 048
     Dates: start: 201106, end: 20151119

REACTIONS (2)
  - Cardiac failure chronic [Fatal]
  - Pulmonary arterial hypertension [Fatal]

NARRATIVE: CASE EVENT DATE: 20151119
